FAERS Safety Report 7726056-6 (Version None)
Quarter: 2011Q3

REPORT INFORMATION
  Report Type: 
  Country: None (occurrence: None)
  Receive Date: 20110902
  Receipt Date: 20110829
  Transmission Date: 20111222
  Serious: Yes (Hospitalization, Other)
  Sender: FDA-Public Use
  Company Number: US-AMGEN-USASP2011044378

PATIENT
  Sex: Female

DRUGS (7)
  1. TAMOXIFEN CITRATE [Concomitant]
  2. EPOGEN [Suspect]
     Indication: ANAEMIA OF MALIGNANT DISEASE
     Dosage: UNK
     Dates: start: 20100201
  3. ZOMETA [Concomitant]
  4. AVASTIN [Concomitant]
  5. TAXOL [Concomitant]
  6. NEUPOGEN [Suspect]
     Indication: CHEMOTHERAPY
     Dosage: UNK
  7. FEMARA [Concomitant]

REACTIONS (6)
  - POST PROCEDURAL DISCHARGE [None]
  - METASTASES TO CENTRAL NERVOUS SYSTEM [None]
  - BEDRIDDEN [None]
  - DRUG INTOLERANCE [None]
  - FULL BLOOD COUNT INCREASED [None]
  - BRAIN OEDEMA [None]
